FAERS Safety Report 9377215 (Version 1)
Quarter: 2013Q3

REPORT INFORMATION
  Report Type: Spontaneous
  Country: JP (occurrence: JP)
  Receive Date: 20130701
  Receipt Date: 20130701
  Transmission Date: 20140515
  Serious: Yes (Other)
  Sender: FDA-Public Use
  Company Number: JP-ASTELLAS-2013JP007081

PATIENT
  Age: 68 Year
  Sex: Male

DRUGS (1)
  1. BETANIS [Suspect]
     Dosage: 50 MG, UID/QD
     Route: 048
     Dates: start: 20130613

REACTIONS (2)
  - Muscular weakness [Unknown]
  - Gait disturbance [Unknown]
